FAERS Safety Report 25359122 (Version 1)
Quarter: 2025Q2

REPORT INFORMATION
  Report Type: Spontaneous
  Country: IT (occurrence: IT)
  Receive Date: 20250526
  Receipt Date: 20250526
  Transmission Date: 20250717
  Serious: Yes (Hospitalization, Other)
  Sender: ABBVIE
  Company Number: IT-JNJFOC-20250526474

PATIENT
  Age: 69 Year
  Sex: Male

DRUGS (4)
  1. IBRUTINIB [Suspect]
     Active Substance: IBRUTINIB
     Indication: Chronic lymphocytic leukaemia
     Dosage: IBRUTINIB WAS RESUMED 9 DAYS LATER AT 140 MG QD AND THEN BROUGHT UP TO 420 MG QD WITHIN 2 MONTHS
     Route: 048
  2. IBRUTINIB [Suspect]
     Active Substance: IBRUTINIB
     Indication: Chronic lymphocytic leukaemia
     Dosage: IBRUTINIB WAS RESUMED 9 DAYS LATER AT 140 MG QD AND THEN BROUGHT UP TO 420 MG QD WITHIN 2 MONTHS
     Route: 048
  3. FONDAPARINUX [Suspect]
     Active Substance: FONDAPARINUX
     Indication: Anticoagulant therapy
     Route: 048
  4. VENETOCLAX [Suspect]
     Active Substance: VENETOCLAX
     Indication: Chronic lymphocytic leukaemia
     Route: 048

REACTIONS (10)
  - Blood loss anaemia [Unknown]
  - Dizziness [Unknown]
  - Asthenia [Unknown]
  - Tumour lysis syndrome [Unknown]
  - Blood creatinine increased [Unknown]
  - Haematuria [Unknown]
  - Leukocytosis [Unknown]
  - Chest pain [Unknown]
  - Hyperkalaemia [Unknown]
  - Hyperphosphataemia [Unknown]
